APPROVED DRUG PRODUCT: CYPROHEPTADINE HYDROCHLORIDE
Active Ingredient: CYPROHEPTADINE HYDROCHLORIDE
Strength: 2MG/5ML
Dosage Form/Route: SYRUP;ORAL
Application: A203191 | Product #001 | TE Code: AA
Applicant: CHARTWELL MOLECULAR HOLDINGS LLC
Approved: Jul 13, 2017 | RLD: No | RS: No | Type: RX